FAERS Safety Report 12198437 (Version 1)
Quarter: 2016Q1

REPORT INFORMATION
  Report Type: Spontaneous
  Country: US (occurrence: None)
  Receive Date: 20160321
  Receipt Date: 20160321
  Transmission Date: 20160526
  Serious: Yes (Disabling)
  Sender: FDA-Public Use
  Company Number: None

PATIENT
  Age: 2 Month
  Sex: Female
  Weight: 86.18 kg

DRUGS (3)
  1. CIPROFLOXACIN 250 MG WEST-WAR [Suspect]
     Active Substance: CIPROFLOXACIN
     Indication: URINARY TRACT INFECTION
     Dosage: 1 PILLS TWICE DAILY  TAKEN BY MOUTH
     Route: 048
     Dates: start: 20150828, end: 20150903
  2. LEVOTHYROXINE. [Concomitant]
     Active Substance: LEVOTHYROXINE
  3. VITAMIN B12 [Concomitant]
     Active Substance: CYANOCOBALAMIN

REACTIONS (20)
  - Neck pain [None]
  - Vision blurred [None]
  - Musculoskeletal stiffness [None]
  - Rotator cuff syndrome [None]
  - Dyspnoea [None]
  - Fatigue [None]
  - Diarrhoea [None]
  - Paraesthesia [None]
  - Hypoaesthesia [None]
  - Muscular weakness [None]
  - Pain [None]
  - Back pain [None]
  - Pain in extremity [None]
  - Tendon pain [None]
  - Disturbance in attention [None]
  - Muscle spasms [None]
  - Muscle tightness [None]
  - Speech disorder [None]
  - Gastric disorder [None]
  - Muscle twitching [None]

NARRATIVE: CASE EVENT DATE: 20150903
